FAERS Safety Report 6496698-7 (Version None)
Quarter: 2009Q4

REPORT INFORMATION
  Report Type: 
  Country: None (occurrence: None)
  Receive Date: 20091211
  Receipt Date: 20091201
  Transmission Date: 20100525
  Serious: Yes (Death, Hospitalization)
  Sender: FDA-Public Use
  Company Number: 167

PATIENT
  Age: 75 Year
  Sex: Female

DRUGS (6)
  1. FAZACLO ODT [Suspect]
     Indication: DEMENTIA ALZHEIMER'S TYPE
     Dosage: 100 MG PO DAILY
     Route: 048
     Dates: start: 20071024, end: 20071119
  2. TPN [Concomitant]
  3. ANTIBIOTICS [Concomitant]
  4. PRESSORS [Concomitant]
  5. MORPHINE PRN [Concomitant]
  6. ATIVAN PRN [Concomitant]

REACTIONS (8)
  - CHILLS [None]
  - CLOSTRIDIUM COLITIS [None]
  - GENERAL PHYSICAL HEALTH DETERIORATION [None]
  - HYPOTENSION [None]
  - LEUKOCYTOSIS [None]
  - MENTAL STATUS CHANGES [None]
  - OXYGEN SATURATION DECREASED [None]
  - PYREXIA [None]
